FAERS Safety Report 23671521 (Version 1)
Quarter: 2024Q1

REPORT INFORMATION
  Report Type: Spontaneous
  Country: BR (occurrence: BR)
  Receive Date: 20240326
  Receipt Date: 20240326
  Transmission Date: 20240409
  Serious: Yes (Other)
  Sender: FDA-Public Use
  Company Number: BR-OPELLA-2024OHG009539

PATIENT
  Age: 66 Year
  Sex: Male
  Weight: 60 kg

DRUGS (3)
  1. DULCOLAX STIMULANT LAXATIVE [Suspect]
     Active Substance: BISACODYL
     Indication: Spinal disorder
     Dosage: 2X DURING THE NIGHT BEFORE EXAMINATION?TABLET
     Route: 048
     Dates: start: 20240317, end: 20240322
  2. PHENOBARBITAL [Concomitant]
     Active Substance: PHENOBARBITAL
     Indication: Sleep disorder
     Dosage: 1X AO DAY
     Route: 048
  3. CLORIDRATO DE CIPROFLOXACINO [Concomitant]
     Indication: Pain
     Dosage: 1X AO DAY
     Route: 048

REACTIONS (6)
  - Diarrhoea haemorrhagic [Recovering/Resolving]
  - Syncope [Unknown]
  - Muscular weakness [Not Recovered/Not Resolved]
  - Pain [Not Recovered/Not Resolved]
  - Fatigue [Unknown]
  - Dehydration [Unknown]

NARRATIVE: CASE EVENT DATE: 20240317
